FAERS Safety Report 14656172 (Version 1)
Quarter: 2018Q1

REPORT INFORMATION
  Report Type: Report from Study
  Country: AU (occurrence: AU)
  Receive Date: 20180319
  Receipt Date: 20180319
  Transmission Date: 20180509
  Serious: Yes (Life-Threatening, Hospitalization, Other)
  Sender: FDA-Public Use
  Company Number: AU-MYLANLABS-2017M1043387

PATIENT
  Age: 43 Year
  Sex: Female

DRUGS (3)
  1. CLOZARIL [Suspect]
     Active Substance: CLOZAPINE
     Indication: SCHIZOPHRENIA
     Dosage: 275 MG, UNK
     Route: 048
     Dates: start: 20001214
  2. CEFTRIAXONE. [Suspect]
     Active Substance: CEFTRIAXONE
     Indication: LOWER RESPIRATORY TRACT INFECTION
     Dosage: UNK
     Dates: start: 2018
  3. CLOZARIL [Suspect]
     Active Substance: CLOZAPINE
     Dosage: UNK
     Route: 048
     Dates: end: 20180120

REACTIONS (8)
  - Pneumonia [Unknown]
  - Neutropenia [Unknown]
  - Antipsychotic drug level increased [Recovering/Resolving]
  - Cardiac arrest [Unknown]
  - Influenza [Unknown]
  - White blood cell count decreased [Unknown]
  - Anaphylactic reaction [Unknown]
  - Mental disorder [Unknown]

NARRATIVE: CASE EVENT DATE: 20030929
